FAERS Safety Report 8301254-1 (Version None)
Quarter: 2012Q2

REPORT INFORMATION
  Report Type: 
  Country: None (occurrence: None)
  Receive Date: 20120420
  Receipt Date: 20120420
  Transmission Date: 20120825
  Serious: Yes (Life-Threatening, Hospitalization)
  Sender: FDA-Public Use
  Company Number: None

PATIENT
  Age: 69 Year
  Sex: Male

DRUGS (2)
  1. CLOPIDOGREL [Concomitant]
     Indication: CEREBROVASCULAR ACCIDENT
     Dosage: 75 MG
     Route: 048
     Dates: start: 20120111, end: 20120124
  2. ENOXAPARIN [Suspect]
     Indication: ATRIAL FIBRILLATION
     Dosage: 60.0 MG
     Route: 058
     Dates: start: 20120111, end: 20120124

REACTIONS (2)
  - DEPRESSED LEVEL OF CONSCIOUSNESS [None]
  - SUBDURAL HAEMATOMA [None]
